FAERS Safety Report 13145202 (Version 1)
Quarter: 2017Q1

REPORT INFORMATION
  Report Type: Spontaneous
  Country: US (occurrence: US)
  Receive Date: 20170124
  Receipt Date: 20170124
  Transmission Date: 20170428
  Serious: Yes (Other)
  Sender: FDA-Public Use
  Company Number: US-ELI_LILLY_AND_COMPANY-US201701006329

PATIENT
  Age: 49 Year
  Sex: Female

DRUGS (2)
  1. CYMBALTA [Suspect]
     Active Substance: DULOXETINE HYDROCHLORIDE
     Dosage: 30 MG, OTHER
     Route: 065
  2. CYMBALTA [Suspect]
     Active Substance: DULOXETINE HYDROCHLORIDE
     Indication: DEPRESSIVE SYMPTOM
     Dosage: 60 MG, QD
     Route: 065
     Dates: start: 2008

REACTIONS (7)
  - Feeling abnormal [Unknown]
  - Irritability [Unknown]
  - Withdrawal syndrome [Unknown]
  - Paraesthesia [Recovered/Resolved]
  - Spondylitis [Unknown]
  - Hypoaesthesia [Recovered/Resolved]
  - Dizziness [Unknown]
